FAERS Safety Report 23779412 (Version 7)
Quarter: 2025Q2

REPORT INFORMATION
  Report Type: Spontaneous
  Country: CA (occurrence: CA)
  Receive Date: 20240424
  Receipt Date: 20250501
  Transmission Date: 20250717
  Serious: Yes (Other)
  Sender: PFIZER
  Company Number: CA-PFIZER INC-202400016724

PATIENT
  Age: 4 Year
  Sex: Female

DRUGS (3)
  1. ABRILADA [Suspect]
     Active Substance: ADALIMUMAB-AFZB
     Indication: Uveitis
     Route: 058
     Dates: start: 20240112
  2. ABRILADA [Suspect]
     Active Substance: ADALIMUMAB-AFZB
     Route: 058
     Dates: start: 20240614, end: 2024
  3. METHOTREXATE [Concomitant]
     Active Substance: METHOTREXATE
     Indication: Uveitis
     Dosage: 1 DF, WEEKLY (UNKNOWN DOSE)
     Route: 058
     Dates: end: 20241202

REACTIONS (17)
  - Tonsillar hypertrophy [Not Recovered/Not Resolved]
  - Adenoidal hypertrophy [Not Recovered/Not Resolved]
  - Intervertebral disc protrusion [Unknown]
  - Lethargy [Unknown]
  - Eating disorder [Unknown]
  - Fatigue [Unknown]
  - Irritability [Unknown]
  - Illness [Unknown]
  - Middle insomnia [Unknown]
  - Behaviour disorder [Unknown]
  - Pollakiuria [Unknown]
  - Back pain [Unknown]
  - Condition aggravated [Unknown]
  - Photosensitivity reaction [Unknown]
  - Photophobia [Not Recovered/Not Resolved]
  - Respiratory tract infection [Unknown]
  - Rhinitis [Unknown]

NARRATIVE: CASE EVENT DATE: 20240101
